FAERS Safety Report 16173272 (Version 1)
Quarter: 2019Q2

REPORT INFORMATION
  Report Type: Report from Study
  Country: None (occurrence: FR)
  Receive Date: 20190401
  Receipt Date: 20190401
  Transmission Date: 20190711
  Serious: Yes (Other)
  Sender: FDA-Public Use
  Company Number: FR-BIOVITRUM-2019FR0602

PATIENT

DRUGS (1)
  1. KINERET [Suspect]
     Active Substance: ANAKINRA
     Indication: KAWASAKI^S DISEASE

REACTIONS (1)
  - Pancreatitis [Unknown]
